FAERS Safety Report 11511313 (Version 2)
Quarter: 2015Q4

REPORT INFORMATION
  Report Type: Report from Study
  Country: US (occurrence: US)
  Receive Date: 20150915
  Receipt Date: 20151008
  Transmission Date: 20160304
  Serious: Yes (Other)
  Sender: FDA-Public Use
  Company Number: US-GILEAD-2015-0169140

PATIENT
  Age: 79 Year
  Sex: Male

DRUGS (2)
  1. IDELALISIB [Suspect]
     Active Substance: IDELALISIB
     Indication: CHRONIC LYMPHOCYTIC LEUKAEMIA
     Dosage: 150 MG, BID
     Route: 048
     Dates: start: 20150801
  2. IDELALISIB [Suspect]
     Active Substance: IDELALISIB
     Indication: MASS

REACTIONS (5)
  - Asthenia [Unknown]
  - Dyspnoea [Unknown]
  - Pulmonary embolism [Unknown]
  - Dizziness [Unknown]
  - Headache [Unknown]
